FAERS Safety Report 7542193-3 (Version None)
Quarter: 2011Q2

REPORT INFORMATION
  Report Type: 
  Country: None (occurrence: None)
  Receive Date: 20110613
  Receipt Date: 20110602
  Transmission Date: 20111010
  Serious: Yes (Hospitalization)
  Sender: FDA-Public Use
  Company Number: GB-ASTRAZENECA-2011SE33980

PATIENT
  Age: 85 Year
  Sex: Male

DRUGS (12)
  1. SENNA-MINT WAF [Concomitant]
  2. TEMAZEPAM [Concomitant]
  3. ASPIRIN [Concomitant]
  4. FINASTERIDE [Concomitant]
  5. SALAMOL [Concomitant]
  6. TAMSULOSIN HCL [Concomitant]
  7. QUETIAPINE [Suspect]
     Indication: ANXIETY
     Route: 048
     Dates: end: 20110512
  8. DICLOFENAC DIETHYLAMINE [Concomitant]
  9. LANSOPRAZOLE [Concomitant]
  10. DIPYRIDAMOLE [Concomitant]
  11. VENLAFAXINE [Suspect]
     Indication: ANXIETY
     Route: 048
     Dates: end: 20110512
  12. ACETAMINOPHEN [Concomitant]

REACTIONS (4)
  - HYPERHIDROSIS [None]
  - ELECTROCARDIOGRAM QT PROLONGED [None]
  - VENTRICULAR EXTRASYSTOLES [None]
  - COLD SWEAT [None]
